FAERS Safety Report 24607723 (Version 1)
Quarter: 2024Q4

REPORT INFORMATION
  Report Type: Report from Study
  Country: US (occurrence: US)
  Receive Date: 20241112
  Receipt Date: 20241112
  Transmission Date: 20250114
  Serious: Yes (Other)
  Sender: ALEXION PHARMACEUTICALS
  Company Number: US-AstraZeneca-CH-00734040A

PATIENT

DRUGS (8)
  1. DAPAGLIFLOZIN [Suspect]
     Active Substance: DAPAGLIFLOZIN
     Dosage: UNK
  2. DAPAGLIFLOZIN [Suspect]
     Active Substance: DAPAGLIFLOZIN
     Dosage: UNK
  3. DAPAGLIFLOZIN [Suspect]
     Active Substance: DAPAGLIFLOZIN
     Dosage: UNK
  4. DAPAGLIFLOZIN [Suspect]
     Active Substance: DAPAGLIFLOZIN
     Dosage: UNK
  5. TICAGRELOR [Suspect]
     Active Substance: TICAGRELOR
     Dosage: UNK
  6. TICAGRELOR [Suspect]
     Active Substance: TICAGRELOR
     Dosage: UNK
  7. TICAGRELOR [Suspect]
     Active Substance: TICAGRELOR
     Dosage: UNK
  8. TICAGRELOR [Suspect]
     Active Substance: TICAGRELOR
     Dosage: UNK

REACTIONS (2)
  - Heart failure with reduced ejection fraction [Unknown]
  - Decreased activity [Unknown]
